FAERS Safety Report 18709694 (Version 1)
Quarter: 2021Q1

REPORT INFORMATION
  Report Type: Spontaneous
  Country: US (occurrence: US)
  Receive Date: 20210106
  Receipt Date: 20210106
  Transmission Date: 20210419
  Serious: No
  Sender: FDA-Public Use
  Company Number: US-BRECKENRIDGE PHARMACEUTICAL, INC.-2104027

PATIENT
  Age: 43 Year
  Sex: Female

DRUGS (4)
  1. ALPRAZOLAM. [Suspect]
     Active Substance: ALPRAZOLAM
     Indication: ANXIETY DISORDER
     Route: 048
  2. HYDROXYZINE PAMOATE. [Concomitant]
     Active Substance: HYDROXYZINE PAMOATE
  3. CELEXA [Concomitant]
     Active Substance: CITALOPRAM HYDROBROMIDE
  4. DEPAKOTE [Suspect]
     Active Substance: DIVALPROEX SODIUM

REACTIONS (5)
  - Drug ineffective [None]
  - Tinnitus [None]
  - Paraesthesia [None]
  - Seizure [None]
  - Drug hypersensitivity [None]
